FAERS Safety Report 14575675 (Version 1)
Quarter: 2018Q1

REPORT INFORMATION
  Report Type: Spontaneous
  Country: US (occurrence: US)
  Receive Date: 20180227
  Receipt Date: 20180227
  Transmission Date: 20180509
  Serious: Yes (Other)
  Sender: FDA-Public Use
  Company Number: US-ROCHE-2079217

PATIENT
  Age: 60 Year
  Sex: Male

DRUGS (15)
  1. METFORMIN [Concomitant]
     Active Substance: METFORMIN HYDROCHLORIDE
     Route: 065
  2. METOPROLOL. [Concomitant]
     Active Substance: METOPROLOL
  3. XOLAIR [Suspect]
     Active Substance: OMALIZUMAB
     Indication: ASTHMA
     Route: 058
     Dates: start: 20171214
  4. BUDESONIDE. [Concomitant]
     Active Substance: BUDESONIDE
  5. LYRICA [Concomitant]
     Active Substance: PREGABALIN
  6. PREDNISONE. [Concomitant]
     Active Substance: PREDNISONE
  7. ONDANSETRON [Concomitant]
     Active Substance: ONDANSETRON
  8. LEVOTHYROXINE. [Concomitant]
     Active Substance: LEVOTHYROXINE
  9. MUPIROCIN. [Concomitant]
     Active Substance: MUPIROCIN
  10. ALBUTEROL. [Concomitant]
     Active Substance: ALBUTEROL
  11. SIMVASTATIN. [Concomitant]
     Active Substance: SIMVASTATIN
  12. AMOXICILLIN. [Concomitant]
     Active Substance: AMOXICILLIN
  13. NOVOLOG [Concomitant]
     Active Substance: INSULIN ASPART
  14. OXYCODONE [Concomitant]
     Active Substance: OXYCODONE
  15. TRESIBA [Concomitant]
     Active Substance: INSULIN DEGLUDEC

REACTIONS (1)
  - Pulmonary embolism [Unknown]

NARRATIVE: CASE EVENT DATE: 20180126
